FAERS Safety Report 6484445-4 (Version None)
Quarter: 2009Q4

REPORT INFORMATION
  Report Type: 
  Country: None (occurrence: None)
  Receive Date: 20091209
  Receipt Date: 20091127
  Transmission Date: 20100525
  Serious: Yes (Hospitalization)
  Sender: FDA-Public Use
  Company Number: PHHY2009BR52682

PATIENT
  Sex: Female
  Weight: 70 kg

DRUGS (7)
  1. EXELON [Suspect]
     Indication: MEMORY IMPAIRMENT
     Dosage: 1 CAPSULE (4.5 MG) TWICE DAILY
     Route: 048
     Dates: start: 20050101, end: 20090901
  2. EXELON [Suspect]
     Dosage: 1 CAPSULE (6 MG) TWICE DAILY
     Route: 048
  3. LASIX [Concomitant]
     Dosage: 25 MG, QD
     Dates: start: 20060101
  4. LASIX [Concomitant]
     Dosage: 40 MG, Q12H
  5. ARADOIS [Concomitant]
     Indication: HYPERTENSION
     Dosage: 1 TABLET/ DAY
     Route: 048
  6. ALDACTONE [Concomitant]
     Indication: FLUID RETENTION
     Dosage: 1 TABLET/ DAY
     Route: 048
  7. CARDIOL [Concomitant]
     Indication: CARDIAC DISORDER
     Dosage: 1 TABLET/ DAY
     Route: 048

REACTIONS (6)
  - CONDITION AGGRAVATED [None]
  - DYSPNOEA [None]
  - FLUID RETENTION [None]
  - MEMORY IMPAIRMENT [None]
  - PLEURAL EFFUSION [None]
  - TREATMENT NONCOMPLIANCE [None]
